FAERS Safety Report 4310247-0 (Version None)
Quarter: 2004Q1

REPORT INFORMATION
  Report Type: 
  Country: None (occurrence: None)
  Receive Date: 20040301
  Receipt Date: 20040301
  Transmission Date: 20041129
  Serious: Yes (Other)
  Sender: FDA-Public Use
  Company Number: None

PATIENT
  Age: 47 Year
  Sex: Female
  Weight: 72.5755 kg

DRUGS (11)
  1. LEVAQUIN [Suspect]
     Indication: DISEASE RECURRENCE
     Dosage: 1 TABLET Q DAY ORAL
     Route: 048
     Dates: start: 20030101, end: 20030110
  2. LEVAQUIN [Suspect]
     Indication: INFECTION
     Dosage: 1 TABLET Q DAY ORAL
     Route: 048
     Dates: start: 20030101, end: 20030110
  3. LEVAQUIN [Suspect]
     Indication: SINUSITIS
     Dosage: 1 TABLET Q DAY ORAL
     Route: 048
     Dates: start: 20030101, end: 20030110
  4. LEVAQUIN [Suspect]
     Indication: SURGERY
     Dosage: 1 TABLET Q DAY ORAL
     Route: 048
     Dates: start: 20030101, end: 20030110
  5. LEVAQUIN [Suspect]
     Indication: DISEASE RECURRENCE
     Dosage: 1 TABLET Q DAY ORAL
     Route: 048
     Dates: start: 20031010, end: 20040105
  6. LEVAQUIN [Suspect]
     Indication: INFECTION
     Dosage: 1 TABLET Q DAY ORAL
     Route: 048
     Dates: start: 20031010, end: 20040105
  7. LEVAQUIN [Suspect]
     Indication: SINUSITIS
     Dosage: 1 TABLET Q DAY ORAL
     Route: 048
     Dates: start: 20031010, end: 20040105
  8. LEVAQUIN [Suspect]
     Indication: SURGERY
     Dosage: 1 TABLET Q DAY ORAL
     Route: 048
     Dates: start: 20031010, end: 20040105
  9. MEDROL [Concomitant]
  10. CELESTONE [Concomitant]
  11. DECADRON [Concomitant]

REACTIONS (10)
  - ACTIVITIES OF DAILY LIVING IMPAIRED [None]
  - ARTHRALGIA [None]
  - ASTHENIA [None]
  - DIFFICULTY IN WALKING [None]
  - DISEASE RECURRENCE [None]
  - INFECTION [None]
  - JOINT STIFFNESS [None]
  - PAIN [None]
  - TENDON RUPTURE [None]
  - TENDONITIS [None]
